FAERS Safety Report 9638724 (Version 1)
Quarter: 2013Q4

REPORT INFORMATION
  Report Type: Spontaneous
  Country: JP (occurrence: None)
  Receive Date: 20131018
  Receipt Date: 20131018
  Transmission Date: 20140711
  Serious: Yes (Death)
  Sender: FDA-Public Use
  Company Number: C-13-096

PATIENT
  Age: 8 Decade
  Sex: Female

DRUGS (1)
  1. CHLORPHENIRAMINE [Suspect]

REACTIONS (12)
  - Accidental death [None]
  - Contusion [None]
  - Cervical vertebral fracture [None]
  - Rib fracture [None]
  - Fractured coccyx [None]
  - Renal atrophy [None]
  - Fat embolism [None]
  - Coma [None]
  - Respiratory distress [None]
  - Fall [None]
  - Nephrosclerosis [None]
  - Drug level above therapeutic [None]
